FAERS Safety Report 11427343 (Version 1)
Quarter: 2015Q3

REPORT INFORMATION
  Report Type: Spontaneous
  Country: US (occurrence: US)
  Receive Date: 20150827
  Receipt Date: 20150827
  Transmission Date: 20151125
  Serious: No
  Sender: FDA-Public Use
  Company Number: US-SA-2015SA056551

PATIENT
  Age: 25 Year
  Sex: Female
  Weight: 68 kg

DRUGS (16)
  1. DIPHENHYDRAMINE. [Concomitant]
     Active Substance: DIPHENHYDRAMINE
     Dosage: 25 MG PRN ANA PO
     Route: 048
     Dates: start: 20150122
  2. NORMAL SALINE [Concomitant]
     Active Substance: SODIUM CHLORIDE
     Dosage: 0.9% DILU/FLUSH
     Route: 042
     Dates: start: 20150122
  3. EPIPEN [Concomitant]
     Active Substance: EPINEPHRINE
     Dosage: 0.3 MG PRN ANA
     Dates: start: 20150122
  4. FABRAZYME [Suspect]
     Active Substance: AGALSIDASE BETA
     Indication: LIPIDOSIS
     Route: 042
  5. ACETAMINOPHEN. [Concomitant]
     Active Substance: ACETAMINOPHEN
     Route: 048
     Dates: start: 20101102
  6. WATER FOR INJECTION [Concomitant]
     Active Substance: WATER
     Dosage: 10 ML RECON IV
     Route: 042
     Dates: start: 20150122
  7. SODIUM CHLORIDE. [Concomitant]
     Active Substance: SODIUM CHLORIDE
     Dosage: 0.9% FLUSH IV
     Route: 042
     Dates: start: 20150122
  8. FABRAZYME [Suspect]
     Active Substance: AGALSIDASE BETA
     Indication: LIPIDOSIS
     Route: 042
  9. BACTRIM [Concomitant]
     Active Substance: SULFAMETHOXAZOLE\TRIMETHOPRIM
     Dosage: 400-800 MG UD
     Route: 048
     Dates: start: 20131219
  10. IMPLANON [Concomitant]
     Active Substance: ETONOGESTREL
     Dosage: IMPLANT UD
     Dates: start: 20101102
  11. TUMS [Concomitant]
     Active Substance: CALCIUM CARBONATE
     Dosage: TUMS 500
     Route: 048
     Dates: start: 20101102
  12. ACETAMINOPHEN. [Concomitant]
     Active Substance: ACETAMINOPHEN
     Route: 048
     Dates: start: 20150122
  13. HEPARIN [Concomitant]
     Active Substance: HEPARIN SODIUM
     Dosage: 100UN/ML HEP5IV
     Route: 042
     Dates: start: 20150122
  14. IBUPROFEN. [Concomitant]
     Active Substance: IBUPROFEN
     Route: 048
     Dates: start: 20110304
  15. MOTRIN [Concomitant]
     Active Substance: IBUPROFEN
     Route: 048
     Dates: start: 20101102
  16. KEFLEX [Concomitant]
     Active Substance: CEPHALEXIN
     Dosage: 250 MG UD
     Route: 048
     Dates: start: 20130917

REACTIONS (1)
  - Drug dose omission [Unknown]
